FAERS Safety Report 14182961 (Version 5)
Quarter: 2022Q3

REPORT INFORMATION
  Report Type: Report from Study
  Country: CA (occurrence: CA)
  Receive Date: 20171113
  Receipt Date: 20220707
  Transmission Date: 20221026
  Serious: Yes (Other)
  Sender: FDA-Public Use
  Company Number: CA-GLAXOSMITHKLINE-CA2016GSK152227

PATIENT

DRUGS (15)
  1. MEPOLIZUMAB [Suspect]
     Active Substance: MEPOLIZUMAB
     Indication: Asthma
     Dosage: 100 MG, Z, MONTHLY
     Dates: start: 20161005
  2. MEPOLIZUMAB [Suspect]
     Active Substance: MEPOLIZUMAB
     Dosage: 100 MG, Z, MONTHLY
  3. MEPOLIZUMAB [Suspect]
     Active Substance: MEPOLIZUMAB
     Dosage: 100 MG, Z, MONTHLY
  4. MEPOLIZUMAB [Suspect]
     Active Substance: MEPOLIZUMAB
     Dosage: 100 MG, Z, MONTHLY
  5. MEPOLIZUMAB [Suspect]
     Active Substance: MEPOLIZUMAB
     Dosage: 100 MG, Z, MONTHLY
  6. VENTOLIN [Suspect]
     Active Substance: ALBUTEROL SULFATE
     Indication: Product used for unknown indication
     Dosage: UNK
  7. THEOPHYLLINE [Suspect]
     Active Substance: THEOPHYLLINE
     Indication: Product used for unknown indication
     Dosage: UNK
  8. MONTELUKAST [Suspect]
     Active Substance: MONTELUKAST SODIUM
     Indication: Product used for unknown indication
     Dosage: UNK
  9. XOLAIR [Suspect]
     Active Substance: OMALIZUMAB
     Indication: Product used for unknown indication
     Dosage: UNK
  10. SYMBICORT [Suspect]
     Active Substance: BUDESONIDE\FORMOTEROL FUMARATE DIHYDRATE
     Indication: Product used for unknown indication
     Dosage: 2 PUFF(S), BID, PRN 1-2 TIMES PER DAY
  11. PULMICORT TURBUHALER [Suspect]
     Active Substance: BUDESONIDE
     Indication: Product used for unknown indication
     Dosage: 2 DF, BID, INHALATION
  12. AMLODIPINE BESYLATE [Suspect]
     Active Substance: AMLODIPINE BESYLATE
     Indication: Product used for unknown indication
     Dosage: UNK
  13. VITAMIN D3 [Concomitant]
     Active Substance: CHOLECALCIFEROL
     Indication: Product used for unknown indication
     Dosage: 30000 DF, QD
  14. PROLIA [Concomitant]
     Active Substance: DENOSUMAB
     Indication: Product used for unknown indication
  15. NATURAL CALCIUM [Concomitant]
     Indication: Product used for unknown indication

REACTIONS (32)
  - Bronchial obstruction [Unknown]
  - Headache [Recovered/Resolved]
  - Pyrexia [Recovered/Resolved]
  - Myalgia [Recovered/Resolved]
  - Unevaluable event [Unknown]
  - Injection site haematoma [Unknown]
  - Fatigue [Recovered/Resolved]
  - Sleep disorder [Unknown]
  - Pain in extremity [Unknown]
  - Burning sensation [Unknown]
  - Productive cough [Unknown]
  - Back pain [Unknown]
  - Stress [Unknown]
  - Dyspnoea [Recovering/Resolving]
  - Chills [Unknown]
  - Wheezing [Unknown]
  - Chest pain [Unknown]
  - Malaise [Unknown]
  - Head discomfort [Unknown]
  - Muscular weakness [Unknown]
  - Hypoaesthesia [Unknown]
  - Hyperaemia [Unknown]
  - Breast disorder [Unknown]
  - Asthma [Unknown]
  - Breast operation [Unknown]
  - Influenza [Unknown]
  - Nasopharyngitis [Unknown]
  - Palpitations [Unknown]
  - FEV1/FVC ratio decreased [Unknown]
  - Sputum abnormal [Unknown]
  - Drug ineffective [Unknown]
  - Obstructive airways disorder [Unknown]
